FAERS Safety Report 11038232 (Version 2)
Quarter: 2015Q4

REPORT INFORMATION
  Report Type: Spontaneous
  Country: US (occurrence: US)
  Receive Date: 20150416
  Receipt Date: 20151009
  Transmission Date: 20160304
  Serious: No
  Sender: FDA-Public Use
  Company Number: US-009507513-1504USA015050

PATIENT
  Sex: Male

DRUGS (8)
  1. PROPECIA [Suspect]
     Active Substance: FINASTERIDE
     Indication: ALOPECIA
  2. SEREVENT DISKUS [Concomitant]
     Active Substance: SALMETEROL XINAFOATE
     Indication: ASTHMA
     Dosage: UNK
     Route: 055
     Dates: start: 199512, end: 199902
  3. RANITIDINE [Concomitant]
     Active Substance: RANITIDINE\RANITIDINE HYDROCHLORIDE
     Indication: PEPTIC ULCER
     Dosage: UNK
     Route: 048
     Dates: start: 199711, end: 199911
  4. VENTOLIN [Concomitant]
     Active Substance: ALBUTEROL SULFATE
     Indication: ASTHMA
     Dosage: UNK
     Route: 055
     Dates: start: 1987
  5. PROPECIA [Suspect]
     Active Substance: FINASTERIDE
     Indication: ALOPECIA
     Dosage: 1 MG, QD
     Route: 048
     Dates: start: 19990224, end: 200603
  6. RANITIDINE [Concomitant]
     Active Substance: RANITIDINE\RANITIDINE HYDROCHLORIDE
     Indication: GASTROOESOPHAGEAL REFLUX DISEASE
  7. CLARITIN [Concomitant]
     Active Substance: LORATADINE
     Indication: HYPERSENSITIVITY
     Dosage: UNK
     Route: 048
     Dates: start: 199704, end: 199909
  8. ZOVIRAX [Concomitant]
     Active Substance: ACYCLOVIR
     Indication: HERPES SIMPLEX
     Dosage: UNK
     Route: 048
     Dates: start: 199505

REACTIONS (24)
  - Brain injury [Unknown]
  - Testicular disorder [Unknown]
  - Hypoaesthesia [Unknown]
  - Sensory loss [Unknown]
  - Anxiety [Unknown]
  - Libido decreased [Unknown]
  - Ejaculation disorder [Unknown]
  - Disturbance in attention [Unknown]
  - Breast mass [Unknown]
  - Brain injury [Not Recovered/Not Resolved]
  - Penile size reduced [Unknown]
  - Endocrine disorder [Not Recovered/Not Resolved]
  - Hormone level abnormal [Unknown]
  - Groin pain [Unknown]
  - Hormone level abnormal [Not Recovered/Not Resolved]
  - Sexual dysfunction [Not Recovered/Not Resolved]
  - Breast enlargement [Unknown]
  - Erectile dysfunction [Not Recovered/Not Resolved]
  - Semen volume decreased [Unknown]
  - Depression [Unknown]
  - Back injury [Unknown]
  - Penis injury [Not Recovered/Not Resolved]
  - Testicular pain [Unknown]
  - Renal disorder [Unknown]

NARRATIVE: CASE EVENT DATE: 1999
